FAERS Safety Report 7156833-4 (Version None)
Quarter: 2010Q4

REPORT INFORMATION
  Report Type: 
  Country: None (occurrence: None)
  Receive Date: 20101214
  Receipt Date: 20101129
  Transmission Date: 20110411
  Serious: Yes (Other)
  Sender: FDA-Public Use
  Company Number: PHHY2010ES63253

PATIENT
  Age: 15 Year
  Sex: Male

DRUGS (4)
  1. CLOZAPINE [Suspect]
     Indication: OBSESSIVE-COMPULSIVE DISORDER
     Dosage: 350 MG/DAY
  2. CLOZAPINE [Suspect]
     Indication: SCHIZOPHRENIA
     Dosage: 300 MG/DAY
  3. ANAFRANIL [Suspect]
     Indication: OBSESSIVE-COMPULSIVE DISORDER
     Dosage: 225 MG/DAY
  4. VITAMIN E [Concomitant]

REACTIONS (9)
  - DILATATION VENTRICULAR [None]
  - DYSKINESIA [None]
  - EPILEPSY [None]
  - GRAND MAL CONVULSION [None]
  - MUSCULAR WEAKNESS [None]
  - MYOCLONUS [None]
  - NERVOUS SYSTEM DISORDER [None]
  - SPEECH DISORDER [None]
  - TOXIC ENCEPHALOPATHY [None]
